FAERS Safety Report 8879891 (Version 2)
Quarter: 2013Q3

REPORT INFORMATION
  Report Type: Report from Study
  Country: US (occurrence: US)
  Receive Date: 20121031
  Receipt Date: 20130708
  Transmission Date: 20140515
  Serious: Yes (Hospitalization)
  Sender: FDA-Public Use
  Company Number: US-ELI_LILLY_AND_COMPANY-US201210006322

PATIENT
  Age: 76 Year
  Sex: Male

DRUGS (1)
  1. TERIPARATIDE [Suspect]
     Dosage: 20 UG, QD

REACTIONS (2)
  - Arrhythmia [Unknown]
  - Drug ineffective [Unknown]
